FAERS Safety Report 15786119 (Version 1)
Quarter: 2019Q1

REPORT INFORMATION
  Report Type: Spontaneous
  Country: JP (occurrence: JP)
  Receive Date: 20190103
  Receipt Date: 20190103
  Transmission Date: 20190417
  Serious: Yes (Death)
  Sender: FDA-Public Use
  Company Number: JP-PFIZER INC-2018536756

PATIENT
  Age: 66 Year
  Sex: Male

DRUGS (5)
  1. LORAZEPAM. [Suspect]
     Active Substance: LORAZEPAM
     Dosage: UNK
     Route: 048
  2. REXULTI [Suspect]
     Active Substance: BREXPIPRAZOLE
     Dosage: 2 MG, 1X/DAY (QD)
     Route: 048
     Dates: start: 20180502
  3. AMOBAN [Suspect]
     Active Substance: ZOPICLONE
     Dosage: UNK
     Route: 048
  4. ABILIFY [Suspect]
     Active Substance: ARIPIPRAZOLE
     Indication: SCHIZOPHRENIA
     Dosage: 400 MG, 1X/DAY (EVERY MORNING)
     Route: 030
     Dates: start: 20180521
  5. DORAL [Suspect]
     Active Substance: QUAZEPAM
     Dosage: UNK
     Route: 048

REACTIONS (1)
  - Death [Fatal]

NARRATIVE: CASE EVENT DATE: 20181225
